FAERS Safety Report 22652656 (Version 5)
Quarter: 2024Q2

REPORT INFORMATION
  Report Type: Spontaneous
  Country: JP (occurrence: JP)
  Receive Date: 20230629
  Receipt Date: 20240416
  Transmission Date: 20240716
  Serious: Yes (Hospitalization, Other)
  Sender: FDA-Public Use
  Company Number: JP-002147023-NVSJ2023JP010263

PATIENT
  Age: 59 Year
  Sex: Male

DRUGS (1)
  1. GLIVEC [Suspect]
     Active Substance: IMATINIB MESYLATE
     Indication: Chronic myeloid leukaemia
     Dosage: 200 MG
     Route: 048

REACTIONS (4)
  - Pulmonary toxicity [Recovered/Resolved]
  - Dyspnoea [Unknown]
  - Concomitant disease aggravated [Recovered/Resolved]
  - Lymphocyte count decreased [Recovered/Resolved]
